FAERS Safety Report 9619637 (Version 2)
Quarter: 2013Q4

REPORT INFORMATION
  Report Type: Spontaneous
  Country: US (occurrence: US)
  Receive Date: 20131014
  Receipt Date: 20131030
  Transmission Date: 20140711
  Serious: Yes (Other)
  Sender: FDA-Public Use
  Company Number: PHEH2013US021050

PATIENT
  Sex: Female

DRUGS (7)
  1. DIOVAN [Suspect]
     Dosage: UNK UKN, UNK
     Route: 048
  2. DIOVAN [Suspect]
     Dosage: UNK UKN, UNK
     Route: 048
  3. SIMVASTATIN [Suspect]
     Indication: BLOOD CHOLESTEROL INCREASED
     Dosage: UNK UKN, UNK
  4. DONEPEZIL [Suspect]
     Dosage: UNK UKN, UNK
  5. VOLTAREN ^NOVARTIS^ [Concomitant]
     Indication: PAIN IN EXTREMITY
     Dosage: 100 G, PRN
     Route: 061
  6. VOLTAREN ^NOVARTIS^ [Concomitant]
     Indication: ARTHRALGIA
  7. WARFARIN [Concomitant]
     Indication: THROMBOSIS
     Dosage: UNK UKN, UNK

REACTIONS (1)
  - Dementia Alzheimer^s type [Not Recovered/Not Resolved]
